FAERS Safety Report 8261269-9 (Version None)
Quarter: 2012Q2

REPORT INFORMATION
  Report Type: 
  Country: None (occurrence: None)
  Receive Date: 20120405
  Receipt Date: 20120402
  Transmission Date: 20120825
  Serious: Yes (Hospitalization)
  Sender: FDA-Public Use
  Company Number: US-JNJFOC-20120205596

PATIENT
  Sex: Male
  Weight: 102.06 kg

DRUGS (10)
  1. STELARA [Suspect]
     Route: 058
     Dates: start: 20100108
  2. FOLIC ACID [Concomitant]
  3. LIPITOR [Concomitant]
  4. STELARA [Suspect]
     Indication: PSORIASIS
     Route: 058
  5. LASIX [Concomitant]
     Indication: DIURETIC THERAPY
  6. LACTULOSE [Concomitant]
  7. ALDACTONE [Concomitant]
  8. SPIRONOLACTONE [Concomitant]
  9. ZAROXOLYN [Concomitant]
  10. ASPIRIN [Concomitant]

REACTIONS (3)
  - HYPONATRAEMIA [None]
  - CARDIAC FAILURE CONGESTIVE [None]
  - WEIGHT DECREASED [None]
